FAERS Safety Report 17448033 (Version 3)
Quarter: 2020Q2

REPORT INFORMATION
  Report Type: Spontaneous
  Country: US (occurrence: US)
  Receive Date: 20200222
  Receipt Date: 20200507
  Transmission Date: 20200713
  Serious: No
  Sender: FDA-Public Use
  Company Number: NVSC2020US046207

PATIENT
  Sex: Male

DRUGS (4)
  1. LENVIMA [Concomitant]
     Active Substance: LENVATINIB
     Indication: RENAL CANCER
     Dosage: 10 MG, QD
     Route: 048
     Dates: start: 20200115
  2. LENVIMA [Concomitant]
     Active Substance: LENVATINIB
     Dosage: 10MG QOD WITH 8MG QOD
     Route: 048
     Dates: start: 20200401
  3. AFINITOR [Suspect]
     Active Substance: EVEROLIMUS
     Indication: RENAL CANCER
     Dosage: UNK
     Route: 065
     Dates: start: 20200115
  4. LENVIMA [Concomitant]
     Active Substance: LENVATINIB
     Dosage: 10 MG, QD
     Route: 048
     Dates: start: 20200210

REACTIONS (9)
  - Joint stiffness [Not Recovered/Not Resolved]
  - Rash erythematous [Recovered/Resolved]
  - Cough [Unknown]
  - Epistaxis [Recovered/Resolved]
  - Peripheral swelling [Recovered/Resolved]
  - Productive cough [Recovered/Resolved]
  - Blood pressure measurement [Unknown]
  - Pain in extremity [Recovered/Resolved]
  - Mobility decreased [Unknown]
